FAERS Safety Report 11886008 (Version 1)
Quarter: 2016Q1

REPORT INFORMATION
  Report Type: Spontaneous
  Country: GB (occurrence: GB)
  Receive Date: 20160104
  Receipt Date: 20160104
  Transmission Date: 20160526
  Serious: Yes (Hospitalization)
  Sender: FDA-Public Use
  Company Number: GB-JNJFOC-20151220554

PATIENT
  Sex: Female

DRUGS (1)
  1. CALPOL [Suspect]
     Active Substance: ACETAMINOPHEN
     Indication: ACCIDENTAL EXPOSURE TO PRODUCT
     Dosage: HALF A BOTTLE OR AROUND 32ML
     Route: 048

REACTIONS (4)
  - Product packaging issue [Unknown]
  - Failure of child resistant mechanism for pharmaceutical product [None]
  - Accidental exposure to product by child [None]
  - Accidental exposure to product [Unknown]
